FAERS Safety Report 6518175-7 (Version None)
Quarter: 2009Q4

REPORT INFORMATION
  Report Type: 
  Country: None (occurrence: None)
  Receive Date: 20091223
  Receipt Date: 20091223
  Transmission Date: 20100525
  Serious: Yes (Other)
  Sender: FDA-Public Use
  Company Number: None

PATIENT
  Age: 32 Year
  Sex: Female
  Weight: 68.0396 kg

DRUGS (2)
  1. LUPRON [Suspect]
     Indication: ENDOMETRIOSIS
     Dosage: ENOUGH TO SUPPRESS OVULATION MONTHLY
     Dates: start: 20001201, end: 20010601
  2. LUPRON [Suspect]
     Indication: OVARIAN CYST
     Dosage: ENOUGH TO SUPPRESS OVULATION MONTHLY
     Dates: start: 20001201, end: 20010601

REACTIONS (2)
  - AUTOIMMUNE THYROIDITIS [None]
  - WEIGHT FLUCTUATION [None]
